FAERS Safety Report 11644043 (Version 3)
Quarter: 2015Q4

REPORT INFORMATION
  Report Type: Spontaneous
  Country: US (occurrence: US)
  Receive Date: 20151020
  Receipt Date: 20151228
  Transmission Date: 20160304
  Serious: No
  Sender: FDA-Public Use
  Company Number: US-SHIRE-US201512840

PATIENT
  Sex: Male

DRUGS (2)
  1. PREDNISONE. [Suspect]
     Active Substance: PREDNISONE
     Indication: PRODUCT USED FOR UNKNOWN INDICATION
     Dosage: UNK, UNKNOWN
     Route: 065
     Dates: start: 2015
  2. LIALDA [Suspect]
     Active Substance: MESALAMINE
     Indication: PRODUCT USED FOR UNKNOWN INDICATION
     Dosage: UNK, UNKNOWN
     Route: 048
     Dates: start: 2015

REACTIONS (4)
  - Insomnia [Unknown]
  - Vision blurred [Not Recovered/Not Resolved]
  - Dizziness [Unknown]
  - Headache [Unknown]

NARRATIVE: CASE EVENT DATE: 2015
